FAERS Safety Report 7782172-4 (Version None)
Quarter: 2011Q3

REPORT INFORMATION
  Report Type: 
  Country: None (occurrence: None)
  Receive Date: 20110927
  Receipt Date: 20110925
  Transmission Date: 20111222
  Serious: Yes (Other)
  Sender: FDA-Public Use
  Company Number: US-PFIZER INC-2011062592

PATIENT
  Sex: Male
  Weight: 93 kg

DRUGS (18)
  1. ATENOLOL [Concomitant]
     Indication: HYPERTENSION
     Dosage: 50 MG, 2X/DAY
     Route: 048
  2. TRAZODONE [Concomitant]
     Dosage: UNK
  3. OMEPRAZOLE [Concomitant]
     Dosage: UNK
  4. NASONEX [Concomitant]
     Dosage: UNK
  5. CLOZAPINE [Concomitant]
  6. CHANTIX [Suspect]
     Indication: SMOKING CESSATION THERAPY
     Dosage: UNK
     Route: 048
     Dates: start: 20060101
  7. ATENOLOL [Concomitant]
     Dosage: UNK
  8. LISINOPRIL AND HYDROCHLOROTHIAZIDE [Concomitant]
     Indication: CARDIAC DISORDER
     Dosage: UNK
  9. CHANTIX [Suspect]
     Dosage: UNK
     Route: 048
  10. KLONOPIN [Concomitant]
     Dosage: UNK
     Route: 048
  11. CHANTIX [Suspect]
     Dosage: 0.5 MG, 1X/DAY
     Route: 048
     Dates: start: 20110223, end: 20110101
  12. IBUPROFEN [Concomitant]
     Dosage: UNK
  13. VENTOLIN HFA [Concomitant]
     Indication: ASTHMA
     Dosage: UNK
  14. CORDARONE [Concomitant]
     Dosage: 400 MG, DAILY
     Route: 048
  15. CHANTIX [Suspect]
     Dosage: 1 MG, 2X/DAY
     Route: 048
     Dates: start: 20110101
  16. HYDROCHLOROTHIAZIDE [Concomitant]
     Indication: HYPERTENSION
     Dosage: 12.5 MG, 1X/DAY
     Route: 048
  17. TRIHEXYPHENIDYL [Concomitant]
     Dosage: UNK
  18. DOXYCYCLINE [Concomitant]
     Dosage: 100 MG, 2X/DAY

REACTIONS (7)
  - ANXIETY [None]
  - HALLUCINATION, AUDITORY [None]
  - BLOOD PRESSURE ABNORMAL [None]
  - CHOKING [None]
  - CONFUSIONAL STATE [None]
  - ANGER [None]
  - HALLUCINATION [None]
